FAERS Safety Report 7285377-4 (Version None)
Quarter: 2011Q1

REPORT INFORMATION
  Report Type: 
  Country: None (occurrence: None)
  Receive Date: 20110210
  Receipt Date: 20110203
  Transmission Date: 20110831
  Serious: Yes (Death, Other)
  Sender: FDA-Public Use
  Company Number: FR-SANOFI-AVENTIS-2011SA008261

PATIENT

DRUGS (10)
  1. ANTITHYMOCYTE IMMUNOGLOBULIN [Suspect]
     Indication: STEM CELL TRANSPLANT
     Dosage: REGIMEN 1:2.5 MG/KG, QD ON DAY -3.
     Route: 065
  2. ACYCLOVIR [Concomitant]
     Indication: ANTIVIRAL PROPHYLAXIS
     Route: 048
  3. PLATELETS [Concomitant]
     Route: 042
  4. FLUDARABINE PHOSPHATE [Suspect]
     Indication: STEM CELL TRANSPLANT
     Dosage: REGIMEN 1: 30 MG/M2, QD FROM DAY -6 OR -5 TO DAY -1
     Route: 065
  5. SULFAMETHOXAZOLE AND TRIMETHOPRIM [Concomitant]
  6. RED BLOOD CELLS [Concomitant]
     Route: 042
  7. ACYCLOVIR [Concomitant]
     Route: 042
  8. BUSULFAN [Suspect]
     Indication: STEM CELL TRANSPLANT
     Dosage: REGIMEN 1:1 MG/KG, ONCE Q6H ON DAYS -4 AND -3; ORAL
     Route: 048
  9. CYCLOSPORINE [Concomitant]
     Indication: IMMUNOSUPPRESSION
  10. HEPARIN SODIUM [Concomitant]

REACTIONS (6)
  - CHRONIC GRAFT VERSUS HOST DISEASE [None]
  - ACUTE GRAFT VERSUS HOST DISEASE [None]
  - CEREBRAL HAEMORRHAGE [None]
  - INFECTION [None]
  - TRANSPLANT REJECTION [None]
  - TOXICITY TO VARIOUS AGENTS [None]
